FAERS Safety Report 6798278-2 (Version None)
Quarter: 2010Q2

REPORT INFORMATION
  Report Type: 
  Country: None (occurrence: None)
  Receive Date: 20100623
  Receipt Date: 20100614
  Transmission Date: 20101027
  Serious: Yes (Hospitalization)
  Sender: FDA-Public Use
  Company Number: UTC-001168

PATIENT
  Age: 29 Year
  Sex: Male

DRUGS (3)
  1. REMODULIN [Suspect]
     Dosage: 172.8 UG/KG (0.12 UG/KG, 1 IN 1 MIN), SUBCUTANEOUS
     Route: 058
     Dates: start: 20080130
  2. TRACLEER (BONSENTAN) (TABLETS) [Concomitant]
  3. REVATIO (SILDENAFIL CITRATE) (TABLETS) [Concomitant]

REACTIONS (2)
  - LOSS OF CONSCIOUSNESS [None]
  - PNEUMONIA VIRAL [None]
